FAERS Safety Report 9063246 (Version 1)
Quarter: 2013Q1

REPORT INFORMATION
  Report Type: Spontaneous
  Country: FR (occurrence: FR)
  Receive Date: 20130213
  Receipt Date: 20130213
  Transmission Date: 20140127
  Serious: Yes (Hospitalization)
  Sender: FDA-Public Use
  Company Number: FR-GLAXOSMITHKLINE-B0865070A

PATIENT
  Age: 86 None
  Sex: Male

DRUGS (7)
  1. ZINNAT [Suspect]
     Indication: BRONCHITIS
     Dosage: 1G TWICE PER DAY
     Route: 048
     Dates: start: 20130104, end: 20130108
  2. KARDEGIC [Suspect]
     Indication: PRODUCT USED FOR UNKNOWN INDICATION
     Route: 048
     Dates: start: 2006, end: 20130108
  3. ANAGRELIDE [Suspect]
     Indication: THROMBOCYTOPENIA
     Route: 048
     Dates: end: 20130108
  4. XATRAL [Concomitant]
  5. OMEPRAZOLE [Concomitant]
  6. PIVALONE [Concomitant]
     Indication: BRONCHITIS
     Route: 045
     Dates: start: 20130104, end: 20130108
  7. DEXTROMETHORFAN HBR [Concomitant]
     Indication: BRONCHITIS
     Dates: start: 20130104, end: 20130108

REACTIONS (3)
  - Thrombocytopenia [Not Recovered/Not Resolved]
  - Spontaneous haematoma [Not Recovered/Not Resolved]
  - Red blood cell count decreased [Not Recovered/Not Resolved]
